FAERS Safety Report 12884158 (Version 1)
Quarter: 2016Q4

REPORT INFORMATION
  Report Type: Spontaneous
  Country: US (occurrence: US)
  Receive Date: 20161026
  Receipt Date: 20161026
  Transmission Date: 20170207
  Serious: No
  Sender: FDA-Public Use
  Company Number: US-PFIZER INC-2016496183

PATIENT
  Age: 65 Year
  Sex: Female
  Weight: 66 kg

DRUGS (10)
  1. TRACLEER [Concomitant]
     Active Substance: BOSENTAN
  2. UPTRAVI [Suspect]
     Active Substance: SELEXIPAG
     Dosage: 600 UG, UNK
     Dates: start: 20160913
  3. TYVASO [Suspect]
     Active Substance: TREPROSTINIL
     Indication: PULMONARY ARTERIAL HYPERTENSION
     Dosage: 36 UG, 4X/DAY
     Route: 055
     Dates: start: 20130320
  4. UPTRAVI [Suspect]
     Active Substance: SELEXIPAG
     Dosage: 400 UG, 2X/DAY
  5. TYVASO [Suspect]
     Active Substance: TREPROSTINIL
     Dosage: UNK, 3X/DAY 2 BREATHS
     Route: 055
  6. TYVASO [Suspect]
     Active Substance: TREPROSTINIL
     Dosage: 12 UG, 4X/DAY
     Route: 055
  7. COUMADIN [Concomitant]
     Active Substance: WARFARIN SODIUM
  8. SILDENAFIL CITRATE. [Suspect]
     Active Substance: SILDENAFIL CITRATE
  9. TYVASO [Suspect]
     Active Substance: TREPROSTINIL
     Dosage: 36 UG, 4X/DAY
     Route: 055
  10. DILTIAZEM. [Concomitant]
     Active Substance: DILTIAZEM

REACTIONS (13)
  - Arthralgia [Unknown]
  - Headache [Unknown]
  - Pain in extremity [Unknown]
  - Diarrhoea [Unknown]
  - Colitis [Unknown]
  - Myalgia [Unknown]
  - Rash [Unknown]
  - Pain [Recovered/Resolved]
  - Fatigue [Unknown]
  - Cough [Unknown]
  - Abdominal discomfort [Unknown]
  - Neuropathy peripheral [Unknown]
  - Paraesthesia [Unknown]

NARRATIVE: CASE EVENT DATE: 201608
